FAERS Safety Report 5199796-3 (Version None)
Quarter: 2006Q4

REPORT INFORMATION
  Report Type: 
  Country: None (occurrence: None)
  Receive Date: 20061229
  Receipt Date: 20061220
  Transmission Date: 20070319
  Serious: Yes (Hospitalization, Other)
  Sender: FDA-Public Use
  Company Number: 2005-10-0761

PATIENT
  Age: 32 Year
  Sex: Female
  Weight: 67 kg

DRUGS (2)
  1. PEG-INTRON [Suspect]
     Indication: MALIGNANT MELANOMA
     Dosage: 120 MCG; QW; SC
     Route: 058
     Dates: end: 20050818
  2. PARACETAMOL [Concomitant]

REACTIONS (8)
  - ARTHRALGIA [None]
  - DRUG HYPERSENSITIVITY [None]
  - ESCHERICHIA SEPSIS [None]
  - HYPOTENSION [None]
  - IMMUNE SYSTEM DISORDER [None]
  - SHOCK [None]
  - SYSTEMIC LUPUS ERYTHEMATOSUS [None]
  - VENTRICULAR DYSFUNCTION [None]
